FAERS Safety Report 6612069-4 (Version None)
Quarter: 2010Q1

REPORT INFORMATION
  Report Type: 
  Country: None (occurrence: None)
  Receive Date: 20100303
  Receipt Date: 20100221
  Transmission Date: 20100710
  Serious: Yes (Congenital Anomaly)
  Sender: FDA-Public Use
  Company Number: B0633843A

PATIENT
  Sex: Female

DRUGS (4)
  1. LAMIVUDINE [Suspect]
     Indication: ANTIVIRAL PROPHYLAXIS
  2. ZIDOVUDINE [Suspect]
     Indication: ANTIVIRAL PROPHYLAXIS
  3. DIDANOSINE [Suspect]
  4. ZALCITABINE [Suspect]

REACTIONS (8)
  - CARDIAC FAILURE CONGESTIVE [None]
  - DRUG EXPOSURE DURING PREGNANCY [None]
  - HEPATITIS [None]
  - LIVE BIRTH [None]
  - NEONATAL DISORDER [None]
  - PALLOR [None]
  - RESPIRATORY DISTRESS [None]
  - SEPSIS [None]
